FAERS Safety Report 25715479 (Version 1)
Quarter: 2025Q3

REPORT INFORMATION
  Report Type: Other
  Country: EU (occurrence: EU)
  Receive Date: 20250822
  Receipt Date: 20250822
  Transmission Date: 20251020
  Serious: Yes (Hospitalization, Congenital Anomaly)
  Sender: MACLEODS
  Company Number: EU-EMB-M202400787-1

PATIENT

DRUGS (6)
  1. ARIPIPRAZOLE [Suspect]
     Active Substance: ARIPIPRAZOLE
     Indication: Product used for unknown indication
     Dosage: SINCE SEVERAL YEARS
     Route: 064
     Dates: start: 202311, end: 202408
  2. LEVOTHYROXINE [Suspect]
     Active Substance: LEVOTHYROXINE
     Indication: Product used for unknown indication
     Dosage: L-THYROXIN (SINCE SEVERAL YEARS)
     Route: 064
     Dates: start: 202311, end: 202408
  3. QUETIAPINE [Suspect]
     Active Substance: QUETIAPINE
     Indication: Product used for unknown indication
     Dosage: SINCE SEVERAL YEARS
     Route: 064
     Dates: start: 202311, end: 202408
  4. ACETAMINOPHEN [Suspect]
     Active Substance: ACETAMINOPHEN
     Indication: Product used for unknown indication
     Route: 064
     Dates: start: 202312, end: 202312
  5. QUETIAPINE [Suspect]
     Active Substance: QUETIAPINE
     Indication: Product used for unknown indication
     Dosage: SINCE SEVERAL YEARS
     Route: 064
     Dates: start: 202311, end: 202408
  6. PERTUSSIS VACCINE [Suspect]
     Active Substance: PERTUSSIS VACCINE
     Indication: Product used for unknown indication
     Route: 064

REACTIONS (2)
  - Ventricular septal defect [Not Recovered/Not Resolved]
  - Foetal exposure during pregnancy [Unknown]

NARRATIVE: CASE EVENT DATE: 20240801
